FAERS Safety Report 7338109-5 (Version None)
Quarter: 2011Q1

REPORT INFORMATION
  Report Type: 
  Country: None (occurrence: None)
  Receive Date: 20110210
  Receipt Date: 20110106
  Transmission Date: 20110831
  Serious: No
  Sender: FDA-Public Use
  Company Number: 1000018061

PATIENT
  Age: 48 Year
  Sex: Female

DRUGS (3)
  1. PRILOSEC (OMEPRAZOLE) (OMEPRAZOLE) [Concomitant]
  2. LIBRAX (CHLORDIAZEPOXIDE AND CLIDINIUM) (CHLORDIAZEPOXIDE AND CLIDINIU [Concomitant]
  3. SAVELLA [Suspect]
     Indication: FIBROMYALGIA
     Dosage: 12.5 MG (12.5 MG, 1 IN 1 D), ORAL, 12.5 MG (12.5 MG, 2 IN 1 D), ORAL
     Route: 048
     Dates: start: 20110104, end: 20110104

REACTIONS (1)
  - CHEST PAIN [None]
